FAERS Safety Report 21960508 (Version 6)
Quarter: 2023Q2

REPORT INFORMATION
  Report Type: Spontaneous
  Country: JP (occurrence: JP)
  Receive Date: 20230207
  Receipt Date: 20230613
  Transmission Date: 20230722
  Serious: Yes (Death, Hospitalization, Other)
  Sender: FDA-Public Use
  Company Number: JP-TAKEDA-2023TJP001606

PATIENT
  Age: 39 Year
  Sex: Male
  Weight: 93 kg

DRUGS (11)
  1. ALUNBRIG [Suspect]
     Active Substance: BRIGATINIB
     Indication: Non-small cell lung cancer
     Dosage: 90 MILLIGRAM, QD
     Route: 048
     Dates: start: 20221104, end: 20221110
  2. ALUNBRIG [Suspect]
     Active Substance: BRIGATINIB
     Dosage: 180 MILLIGRAM, QD
     Route: 048
     Dates: start: 20221111, end: 20230202
  3. LOXOPROFEN [Concomitant]
     Active Substance: LOXOPROFEN
     Dosage: UNK
     Route: 065
  4. REBAMIPIDE [Concomitant]
     Active Substance: REBAMIPIDE
     Indication: Product used for unknown indication
     Dosage: 100 MILLIGRAM, BID
     Route: 048
     Dates: start: 20230112, end: 20230221
  5. ACETAMINOPHEN\TRAMADOL HYDROCHLORIDE [Concomitant]
     Active Substance: ACETAMINOPHEN\TRAMADOL HYDROCHLORIDE
     Indication: Pain management
     Dosage: 1 DOSAGE FORM, QID
     Route: 048
     Dates: start: 20230105, end: 20230221
  6. SP [Concomitant]
     Dosage: UNK
     Route: 065
  7. ROSUVASTATIN [Concomitant]
     Active Substance: ROSUVASTATIN
     Indication: Blood cholesterol abnormal
     Dosage: 2.5 MILLIGRAM, QD
     Route: 048
     Dates: start: 20200704, end: 20230221
  8. HUSTAZOL [Concomitant]
     Dosage: UNK
     Route: 065
  9. CELECOXIB [Concomitant]
     Active Substance: CELECOXIB
     Indication: Pain management
     Dosage: 200 MILLIGRAM, BID
     Route: 048
     Dates: start: 20230112, end: 20230221
  10. FUROSEMIDE [Concomitant]
     Active Substance: FUROSEMIDE
     Indication: Pleural effusion
     Dosage: 20 MILLIGRAM, QD
     Route: 048
     Dates: start: 20230202, end: 20230221
  11. FENTANYL [Concomitant]
     Active Substance: FENTANYL
     Indication: Pain management
     Dosage: 0.5 MILLIGRAM, QD
     Route: 062
     Dates: start: 20230202, end: 20230221

REACTIONS (6)
  - Lymphangiosis carcinomatosa [Fatal]
  - Non-small cell lung cancer [Fatal]
  - Pericarditis malignant [Fatal]
  - Pericardial effusion [Fatal]
  - Pulmonary toxicity [Recovering/Resolving]
  - Cardiac failure [Unknown]

NARRATIVE: CASE EVENT DATE: 20230202
